FAERS Safety Report 5319984-2 (Version None)
Quarter: 2007Q1

REPORT INFORMATION
  Report Type: 
  Country: None (occurrence: None)
  Receive Date: 20070201
  Receipt Date: 20060502
  Transmission Date: 20070707
  Serious: Yes (Other)
  Sender: FDA-Public Use
  Company Number: 2006BH009111

PATIENT
  Age: 61 Year
  Sex: Male
  Weight: 160.3 kg

DRUGS (2)
  1. DIANEAL [Suspect]
     Indication: RENAL FAILURE CHRONIC
     Dosage: 3 L; 4X; A DAY; IP
     Route: 033
  2. APD [Concomitant]

REACTIONS (3)
  - BACTERIAL INFECTION [None]
  - PERITONITIS [None]
  - PERITONITIS BACTERIAL [None]
